FAERS Safety Report 22114596 (Version 2)
Quarter: 2023Q2

REPORT INFORMATION
  Report Type: Report from Study
  Country: US (occurrence: US)
  Receive Date: 20230320
  Receipt Date: 20230425
  Transmission Date: 20230722
  Serious: No
  Sender: FDA-Public Use
  Company Number: US-SA-SAC20230316000977

PATIENT
  Age: 34 Year
  Sex: Male

DRUGS (1)
  1. DUPILUMAB [Suspect]
     Active Substance: DUPILUMAB
     Indication: Nasal polyps
     Dosage: 300 MG, QOW
     Route: 058
     Dates: start: 202211

REACTIONS (7)
  - Injection site dryness [Unknown]
  - Injection site discomfort [Unknown]
  - Injection site exfoliation [Unknown]
  - Injection site rash [Unknown]
  - Skin injury [Recovering/Resolving]
  - Injection site pruritus [Unknown]
  - Injection site erythema [Not Recovered/Not Resolved]

NARRATIVE: CASE EVENT DATE: 20230101
